FAERS Safety Report 8120310-4 (Version None)
Quarter: 2012Q1

REPORT INFORMATION
  Report Type: 
  Country: None (occurrence: None)
  Receive Date: 20120207
  Receipt Date: 20120202
  Transmission Date: 20120608
  Serious: Yes (Disabling)
  Sender: FDA-Public Use
  Company Number: US-GLAXOSMITHKLINE-A0911234A

PATIENT
  Age: 50 Year
  Sex: Male

DRUGS (10)
  1. PAXIL [Suspect]
     Indication: PRODUCT USED FOR UNKNOWN INDICATION
     Route: 065
     Dates: start: 20020901, end: 20101201
  2. UNSPECIFIED MEDICATION [Concomitant]
  3. PRISTIQ [Concomitant]
  4. PROZAC [Concomitant]
  5. LIPITOR [Concomitant]
  6. VIOXX [Concomitant]
  7. PAXIL CR [Suspect]
     Indication: PRODUCT USED FOR UNKNOWN INDICATION
     Route: 065
     Dates: start: 20020901, end: 20101201
  8. GLUCOPHAGE [Concomitant]
  9. CYMBALTA [Concomitant]
  10. NSAIDS [Concomitant]

REACTIONS (34)
  - OPTIC NERVE DISORDER [None]
  - DISTURBANCE IN ATTENTION [None]
  - ARTHRALGIA [None]
  - MUSCULOSKELETAL PAIN [None]
  - COAGULOPATHY [None]
  - GASTROINTESTINAL DISORDER [None]
  - CHEST PAIN [None]
  - DYSPNOEA [None]
  - DIZZINESS [None]
  - ARTERIAL DISORDER [None]
  - PERIPHERAL ARTERIAL OCCLUSIVE DISEASE [None]
  - BACK PAIN [None]
  - MEMORY IMPAIRMENT [None]
  - MUSCULAR WEAKNESS [None]
  - DYSPEPSIA [None]
  - MIGRAINE WITH AURA [None]
  - BONE DISORDER [None]
  - ADVERSE EVENT [None]
  - HYPOAESTHESIA [None]
  - ARTHROPATHY [None]
  - CEREBROVASCULAR ACCIDENT [None]
  - SUICIDAL IDEATION [None]
  - HEMIPLEGIA [None]
  - AGEUSIA [None]
  - DIABETES MELLITUS [None]
  - VISION BLURRED [None]
  - DEPRESSION [None]
  - ANOSMIA [None]
  - HYPERTENSION [None]
  - GAIT DISTURBANCE [None]
  - GASTRIC DISORDER [None]
  - AMNESIA [None]
  - AORTIC ANEURYSM [None]
  - BONE DENSITY DECREASED [None]
